FAERS Safety Report 12902661 (Version 2)
Quarter: 2016Q4

REPORT INFORMATION
  Report Type: Spontaneous
  Country: US (occurrence: US)
  Receive Date: 20161102
  Receipt Date: 20161215
  Transmission Date: 20170207
  Serious: No
  Sender: FDA-Public Use
  Company Number: US-GLAXOSMITHKLINE-US2016160881

PATIENT
  Age: 80 Year
  Sex: Male

DRUGS (8)
  1. DIOVAN [Concomitant]
     Active Substance: VALSARTAN
  2. ALBUTEROL. [Concomitant]
     Active Substance: ALBUTEROL
  3. FINASTERIDE. [Concomitant]
     Active Substance: FINASTERIDE
  4. METOPROLOL. [Concomitant]
     Active Substance: METOPROLOL
  5. BREO ELLIPTA [Suspect]
     Active Substance: FLUTICASONE FUROATE\VILANTEROL TRIFENATATE
     Indication: BRONCHITIS
  6. BREO ELLIPTA [Suspect]
     Active Substance: FLUTICASONE FUROATE\VILANTEROL TRIFENATATE
     Indication: BRONCHOSPASM
     Dosage: 1 PUFF(S), QD
     Route: 055
     Dates: start: 20161018, end: 20161028
  7. BETOPTIC [Concomitant]
     Active Substance: BETAXOLOL HYDROCHLORIDE
  8. OMEPRAZOLE. [Concomitant]
     Active Substance: OMEPRAZOLE

REACTIONS (6)
  - Product quality issue [Unknown]
  - Off label use [Recovered/Resolved]
  - Drug dose omission [Unknown]
  - Product use issue [Recovered/Resolved]
  - Circumstance or information capable of leading to medication error [Unknown]
  - Drug ineffective [Unknown]

NARRATIVE: CASE EVENT DATE: 20161018
